FAERS Safety Report 16735663 (Version 2)
Quarter: 2019Q3

REPORT INFORMATION
  Report Type: Spontaneous
  Country: US (occurrence: US)
  Receive Date: 20190823
  Receipt Date: 20190823
  Transmission Date: 20191005
  Serious: No
  Sender: FDA-Public Use
  Company Number: US-TEVA-2019-US-1095272

PATIENT
  Sex: Male

DRUGS (1)
  1. CARBIDOPA AND LEVODOPA ACTAVIS [Suspect]
     Active Substance: CARBIDOPA\LEVODOPA
     Indication: PARKINSON^S DISEASE
     Dosage: DOSE STRENGTH 25/100MG.
     Route: 065
     Dates: start: 2015

REACTIONS (3)
  - Product substitution issue [Unknown]
  - Therapeutic product effect decreased [Unknown]
  - Movement disorder [Unknown]

NARRATIVE: CASE EVENT DATE: 2018
